FAERS Safety Report 5901884-8 (Version None)
Quarter: 2008Q3

REPORT INFORMATION
  Report Type: 
  Country: None (occurrence: None)
  Receive Date: 20080929
  Receipt Date: 20080926
  Transmission Date: 20090109
  Serious: Yes (Life-Threatening)
  Sender: FDA-Public Use
  Company Number: PHHY2008DE21982

PATIENT
  Weight: 60 kg

DRUGS (6)
  1. EXJADE [Suspect]
     Indication: HAEMOSIDEROSIS
     Dosage: 10 MG/KG/DAY
     Route: 048
     Dates: start: 20080526, end: 20080731
  2. DELIX [Concomitant]
     Indication: HYPERTENSION
     Dosage: 5 MG/DAY
  3. NORVASC [Concomitant]
     Indication: HYPERTENSION
     Dosage: 5 MG/DAY
  4. VALPROATE SODIUM [Concomitant]
     Dosage: 600 MG/DAY
     Dates: start: 20080611, end: 20080716
  5. VALPROATE SODIUM [Concomitant]
     Dosage: 900 MG/DAY
     Dates: start: 20080717
  6. TOREM [Concomitant]
     Indication: CARDIAC FAILURE
     Dosage: 5 MG/DAY

REACTIONS (1)
  - MYOCARDIAL INFARCTION [None]
